FAERS Safety Report 14121522 (Version 2)
Quarter: 2018Q1

REPORT INFORMATION
  Report Type: Spontaneous
  Country: US (occurrence: US)
  Receive Date: 20171024
  Receipt Date: 20180115
  Transmission Date: 20180508
  Serious: No
  Sender: FDA-Public Use
  Company Number: US-MYLANLABS-2017M1061149

PATIENT
  Sex: Female

DRUGS (2)
  1. CLONAZEPAM. [Concomitant]
     Active Substance: CLONAZEPAM
     Indication: PRODUCT USED FOR UNKNOWN INDICATION
     Dosage: UNK
  2. ESTRADIOL TRANSDERMAL SYSTEM [Suspect]
     Active Substance: ESTRADIOL
     Indication: PRODUCT USED FOR UNKNOWN INDICATION
     Dosage: 0.05 MG, QD, CHANGE TW
     Route: 062

REACTIONS (4)
  - Fatigue [Recovered/Resolved]
  - Sleep disorder [Recovered/Resolved]
  - Product adhesion issue [Not Recovered/Not Resolved]
  - Product quality issue [Not Recovered/Not Resolved]

NARRATIVE: CASE EVENT DATE: 201709
